FAERS Safety Report 18908428 (Version 3)
Quarter: 2021Q1

REPORT INFORMATION
  Report Type: Report from Study
  Country: US (occurrence: US)
  Receive Date: 20210218
  Receipt Date: 20210311
  Transmission Date: 20210420
  Serious: No
  Sender: FDA-Public Use
  Company Number: US-IPSEN BIOPHARMACEUTICALS, INC.-2021-03621

PATIENT
  Age: 30 Year
  Sex: Female
  Weight: 99 kg

DRUGS (5)
  1. MICRONOR [Concomitant]
     Active Substance: NORETHINDRONE
     Dosage: 0.35 84 TABLET 4 MG TOTAL
     Route: 048
  2. SOMATULINE DEPOT [Suspect]
     Active Substance: LANREOTIDE ACETATE
     Indication: ACROMEGALY
     Dosage: 90MG/0.3 ML
     Route: 058
     Dates: start: 20200425, end: 20210118
  3. THERAGRAN [Concomitant]
     Active Substance: VITAMINS
     Dosage: 1 TABLET BY MOUTH DAILY
     Route: 048
  4. TYLENOL [Concomitant]
     Active Substance: ACETAMINOPHEN
     Indication: PAIN
     Dosage: TAKE 650 MG BY MOUTH AS NEEDED
     Route: 048
  5. POTASSIUM [Concomitant]
     Active Substance: POTASSIUM
     Route: 048

REACTIONS (6)
  - Unevaluable event [Unknown]
  - Blood glucose increased [Unknown]
  - Product dose omission issue [Unknown]
  - Insulin-like growth factor increased [Recovering/Resolving]
  - Weight increased [Not Recovered/Not Resolved]
  - Injection site rash [Unknown]

NARRATIVE: CASE EVENT DATE: 2020
